FAERS Safety Report 11376011 (Version 1)
Quarter: 2015Q3

REPORT INFORMATION
  Report Type: Other
  Country: DE (occurrence: DE)
  Receive Date: 20150813
  Receipt Date: 20150813
  Transmission Date: 20151125
  Serious: Yes (Life-Threatening)
  Sender: FDA-Public Use
  Company Number: DE-MYLANLABS-2015M1026334

PATIENT

DRUGS (9)
  1. ATACAND [Concomitant]
     Active Substance: CANDESARTAN CILEXETIL
     Dosage: 32 MG, UNK
  2. CITALOPRAM [Suspect]
     Active Substance: CITALOPRAM HYDROBROMIDE
     Dosage: 40 MG, UNK
  3. CIATYL Z [Interacting]
     Active Substance: ZUCLOPENTHIXOL ACETATE
     Dosage: 4 MG, UNK
     Dates: start: 20090828
  4. MOXONIDIN [Concomitant]
     Active Substance: MOXONIDINE
     Dosage: 1 DF, QD (0.2 / DAUERMEDIKATION)
  5. ERGENYL CHRONO [Concomitant]
     Active Substance: VALPROIC ACID
     Dosage: 1 DF, QD (1000 / DAUERMEDIKATION)
  6. ALLOPURINOL. [Concomitant]
     Active Substance: ALLOPURINOL
     Dosage: 150 MG, UNK
  7. BAYOTENSIN [Concomitant]
     Dosage: 40 MG, UNK
  8. CONCOR [Concomitant]
     Active Substance: BISOPROLOL FUMARATE
     Dosage: 10 MG, UNK
  9. ESIDRIX [Concomitant]
     Active Substance: HYDROCHLOROTHIAZIDE
     Dosage: 25 MG, UNK

REACTIONS (1)
  - Respiratory failure [Not Recovered/Not Resolved]

NARRATIVE: CASE EVENT DATE: 20090924
